FAERS Safety Report 7715383-4 (Version None)
Quarter: 2011Q3

REPORT INFORMATION
  Report Type: 
  Country: None (occurrence: None)
  Receive Date: 20110829
  Receipt Date: 20110815
  Transmission Date: 20111222
  Serious: Yes (Other)
  Sender: FDA-Public Use
  Company Number: US-ELI_LILLY_AND_COMPANY-US201106008893

PATIENT
  Sex: Female

DRUGS (10)
  1. FORTEO [Suspect]
     Dosage: 20 UG, QD
     Dates: end: 20110814
  2. PREMARIN [Concomitant]
     Dosage: 0.3 MG, 3/W
  3. NAPROXEN (ALEVE) [Concomitant]
     Dosage: 440 MG, QD
  4. FORTEO [Suspect]
     Indication: OSTEOPOROSIS
     Dosage: 20 UG, QD
     Route: 065
     Dates: start: 20110601
  5. LEVOTHYROXINE SODIUM [Concomitant]
     Dosage: UNK, QD
  6. TIZANIDINE HCL [Concomitant]
     Dosage: 2 DF, UNK
     Dates: end: 20110701
  7. FUMARATE DISODIUM [Concomitant]
     Dosage: 10 MG, QD
  8. CLEMASTINE FUMARATE [Concomitant]
  9. SIMAVASTATIN [Concomitant]
     Dosage: 40 MG, QD
  10. CENTRUM SILVER [Concomitant]

REACTIONS (6)
  - PRURITUS [None]
  - EMOTIONAL DISTRESS [None]
  - DRUG DOSE OMISSION [None]
  - INSOMNIA [None]
  - RENAL FAILURE CHRONIC [None]
  - RHINORRHOEA [None]
